FAERS Safety Report 5084829-5 (Version None)
Quarter: 2006Q3

REPORT INFORMATION
  Report Type: 
  Country: None (occurrence: None)
  Receive Date: 20060815
  Receipt Date: 20060810
  Transmission Date: 20061208
  Serious: Yes (Hospitalization, Other)
  Sender: FDA-Public Use
  Company Number: FRWYE660510AUG06

PATIENT
  Age: 39 Year
  Sex: Female

DRUGS (2)
  1. ADVIL [Suspect]
     Indication: RHINITIS ALLERGIC
     Dosage: ONE TABLET IN ALL ORAL
     Route: 048
     Dates: start: 20060201, end: 20060201
  2. DRILL (ASCORBIC ACID/CHLORHEXIDINE GLUCONATE/GLYCYRRHIZIC ACID, AMMONI [Suspect]
     Indication: RHINITIS ALLERGIC
     Dosage: 2 LARYNGEAL PULVERSIATIONS IN ALL
     Dates: start: 20060201, end: 20060201

REACTIONS (4)
  - EYELID OEDEMA [None]
  - FACE OEDEMA [None]
  - MALAISE [None]
  - RASH GENERALISED [None]
